FAERS Safety Report 7380891-5 (Version None)
Quarter: 2011Q1

REPORT INFORMATION
  Report Type: 
  Country: None (occurrence: None)
  Receive Date: 20110329
  Receipt Date: 20110315
  Transmission Date: 20110831
  Serious: Yes (Other)
  Sender: FDA-Public Use
  Company Number: PHHY2011FR22031

PATIENT
  Sex: Male

DRUGS (2)
  1. LAMISIL [Suspect]
     Dosage: UNK
     Dates: start: 20110106, end: 20110128
  2. LAMISIL [Suspect]
     Indication: DERMATOPHYTOSIS

REACTIONS (9)
  - SKIN PLAQUE [None]
  - GAMMA-GLUTAMYLTRANSFERASE INCREASED [None]
  - URTICARIA [None]
  - PRURITUS [None]
  - ARTHRALGIA [None]
  - RASH ERYTHEMATOUS [None]
  - INFLAMMATION [None]
  - C-REACTIVE PROTEIN INCREASED [None]
  - VASCULITIS [None]
